FAERS Safety Report 19258690 (Version 1)
Quarter: 2021Q2

REPORT INFORMATION
  Report Type: Spontaneous
  Country: US (occurrence: US)
  Receive Date: 20210514
  Receipt Date: 20210514
  Transmission Date: 20210717
  Serious: Yes (Hospitalization, Other)
  Sender: FDA-Public Use
  Company Number: US-ASTELLAS-2021US017364

PATIENT
  Age: 67 Year
  Sex: Male

DRUGS (4)
  1. LEXISCAN [Suspect]
     Active Substance: REGADENOSON
     Indication: CARDIAC STRESS TEST
     Dosage: UNK, UNKNOWN FREQ.(0.4 MG/5ML)
     Route: 065
     Dates: start: 20210503, end: 20210503
  2. LEXISCAN [Suspect]
     Active Substance: REGADENOSON
     Indication: CARDIAC STRESS TEST
     Dosage: UNK, UNKNOWN FREQ.(0.4 MG/5ML)
     Route: 065
     Dates: start: 20210503, end: 20210503
  3. LEXISCAN [Suspect]
     Active Substance: REGADENOSON
     Indication: CARDIAC STRESS TEST
     Dosage: UNK, UNKNOWN FREQ.(0.4 MG/5ML)
     Route: 065
     Dates: start: 20210503, end: 20210503
  4. LEXISCAN [Suspect]
     Active Substance: REGADENOSON
     Indication: CARDIAC STRESS TEST
     Dosage: UNK, UNKNOWN FREQ.(0.4 MG/5ML)
     Route: 065
     Dates: start: 20210503, end: 20210503

REACTIONS (3)
  - Respiration abnormal [Unknown]
  - Pulse absent [Recovered/Resolved]
  - Ventricular fibrillation [Unknown]

NARRATIVE: CASE EVENT DATE: 20210503
